FAERS Safety Report 25755955 (Version 2)
Quarter: 2025Q4

REPORT INFORMATION
  Report Type: Spontaneous
  Country: EU (occurrence: EU)
  Receive Date: 20250903
  Receipt Date: 20251007
  Transmission Date: 20260118
  Serious: Yes (Life-Threatening, Disabling)
  Sender: SAMSUNG BIOEPIS
  Company Number: None

PATIENT
  Age: 11 Year
  Sex: Male
  Weight: 43 kg

DRUGS (3)
  1. ETANERCEPT [Suspect]
     Active Substance: ETANERCEPT
     Indication: Arthritis reactive
     Dosage: 2X/WEEK FOR 1 MONTH THEN 1X/WEEK;
     Route: 058
     Dates: start: 20250618, end: 20250713
  2. METHOTREXATE SODIUM [Concomitant]
     Active Substance: METHOTREXATE SODIUM
     Indication: Product used for unknown indication
  3. FOLIC ACID [Concomitant]
     Active Substance: FOLIC ACID
     Indication: Product used for unknown indication

REACTIONS (9)
  - Rash [Recovered/Resolved]
  - Increased tendency to bruise [Recovered/Resolved]
  - Face oedema [Recovered/Resolved]
  - Nocturnal dyspnoea [Recovered/Resolved]
  - Stertor [Recovered/Resolved]
  - Pharyngeal oedema [Recovered/Resolved]
  - Visual impairment [Recovering/Resolving]
  - Iridocyclitis [Recovering/Resolving]
  - Product use in unapproved indication [Unknown]

NARRATIVE: CASE EVENT DATE: 20250621
